FAERS Safety Report 11645164 (Version 1)
Quarter: 2015Q4

REPORT INFORMATION
  Report Type: Spontaneous
  Country: US (occurrence: US)
  Receive Date: 20151020
  Receipt Date: 20151020
  Transmission Date: 20160304
  Serious: Yes (Death)
  Sender: FDA-Public Use
  Company Number: US-ENDO PHARMACEUTICALS INC.-2015-003309

PATIENT
  Age: 29 Year
  Sex: Male
  Weight: 181.6 kg

DRUGS (7)
  1. CODEINE PHOSPHATE / ACETAMINOPHEN 60MG/300MG [Suspect]
     Active Substance: ACETAMINOPHEN\CODEINE PHOSPHATE
     Indication: SCOLIOSIS
  2. CODEINE PHOSPHATE / ACETAMINOPHEN 60MG/300MG [Suspect]
     Active Substance: ACETAMINOPHEN\CODEINE PHOSPHATE
     Indication: BACK PAIN
  3. RELPAX [Concomitant]
     Active Substance: ELETRIPTAN HYDROBROMIDE
     Indication: MIGRAINE
     Route: 048
  4. CODEINE PHOSPHATE / ACETAMINOPHEN 60MG/300MG [Suspect]
     Active Substance: ACETAMINOPHEN\CODEINE PHOSPHATE
     Indication: MIGRAINE
     Dosage: 240 MG/1200 MG
     Route: 048
     Dates: start: 2000
  5. LYRICA [Concomitant]
     Active Substance: PREGABALIN
     Indication: MIGRAINE
     Route: 065
  6. LYRICA [Concomitant]
     Active Substance: PREGABALIN
     Indication: SCOLIOSIS
  7. LYRICA [Concomitant]
     Active Substance: PREGABALIN
     Indication: BACK PAIN

REACTIONS (1)
  - Toxicity to various agents [Fatal]

NARRATIVE: CASE EVENT DATE: 201509
